FAERS Safety Report 19904391 (Version 1)
Quarter: 2021Q3

REPORT INFORMATION
  Report Type: Report from Study
  Country: CA (occurrence: CA)
  Receive Date: 20210930
  Receipt Date: 20210930
  Transmission Date: 20211014
  Serious: Yes (Other)
  Sender: FDA-Public Use
  Company Number: CA-OTSUKA-2021_030518

PATIENT
  Age: 71 Year
  Sex: Female

DRUGS (1)
  1. CEDAZURIDINE AND DECITABINE [Suspect]
     Active Substance: CEDAZURIDINE\DECITABINE
     Indication: MYELODYSPLASTIC SYNDROME
     Dosage: (35 MG DECITABINE AND 100 MG CEDAZURIDINE)
     Route: 065
     Dates: start: 20210801

REACTIONS (4)
  - Decreased appetite [Unknown]
  - Constipation [Recovering/Resolving]
  - Packed red blood cell transfusion [Unknown]
  - Weight decreased [Unknown]

NARRATIVE: CASE EVENT DATE: 202109
